FAERS Safety Report 20487852 (Version 4)
Quarter: 2022Q3

REPORT INFORMATION
  Report Type: Report from Study
  Country: BR (occurrence: BR)
  Receive Date: 20220218
  Receipt Date: 20220908
  Transmission Date: 20221027
  Serious: Yes (Hospitalization, Other)
  Sender: FDA-Public Use
  Company Number: BR-JNJFOC-20220229492

PATIENT
  Age: 49 Year
  Sex: Female

DRUGS (6)
  1. SIMPONI [Suspect]
     Active Substance: GOLIMUMAB
     Indication: Rheumatoid arthritis
     Route: 058
     Dates: start: 202102, end: 202103
  2. SIMPONI [Suspect]
     Active Substance: GOLIMUMAB
  3. PREDNISONE [Concomitant]
     Active Substance: PREDNISONE
     Indication: Rheumatic disorder
     Dosage: TAKES 1 TABLET OF 5MG EVERY DAY AND 10MG WHEN IN CRISIS
     Dates: start: 2000
  4. METHOTREXATE [Concomitant]
     Active Substance: METHOTREXATE
     Indication: Rheumatic disorder
     Dosage: 6 TABLETS, EVERY THURSDAY
     Dates: start: 2000
  5. FOLIC ACID [Concomitant]
     Active Substance: FOLIC ACID
     Indication: Rheumatic disorder
     Dosage: ON FRIDAY
     Dates: start: 2000
  6. DULOXETINE HYDROCHLORIDE [Concomitant]
     Active Substance: DULOXETINE HYDROCHLORIDE
     Indication: Fibromyalgia
     Dosage: IN THE MORNING

REACTIONS (9)
  - Rib fracture [Unknown]
  - Wrist fracture [Unknown]
  - Patella fracture [Recovering/Resolving]
  - Radius fracture [Unknown]
  - Fall [Unknown]
  - Arthritis infective [Unknown]
  - Rheumatoid arthritis [Unknown]
  - Off label use [Unknown]
  - Product use issue [Unknown]

NARRATIVE: CASE EVENT DATE: 20210201
